FAERS Safety Report 17803777 (Version 2)
Quarter: 2020Q4

REPORT INFORMATION
  Report Type: Report from Study
  Country: FR (occurrence: FR)
  Receive Date: 20200519
  Receipt Date: 20201016
  Transmission Date: 20210113
  Serious: Yes (Death, Life-Threatening, Hospitalization)
  Sender: FDA-Public Use
  Company Number: FR-BAYER-2020-088752

PATIENT
  Age: 65 Year
  Sex: Male
  Weight: 67 kg

DRUGS (5)
  1. RED BLOOD CELLS [Concomitant]
     Active Substance: HUMAN RED BLOOD CELL
     Indication: PACKED RED BLOOD CELL TRANSFUSION
     Dosage: 1384 ML TOTAL, INTRA AND POST-OPERATIVE (UP TP 48H)
     Route: 042
     Dates: start: 20190726
  2. ASPIRIN [ACETYLSALICYLIC ACID] [Concomitant]
     Active Substance: ASPIRIN
     Indication: ANTIPLATELET THERAPY
     Dosage: UNK
  3. APROTININ (APROTININ) [Suspect]
     Active Substance: APROTININ
     Indication: AORTIC VALVE REPLACEMENT
     Dosage: 263 ML, QD - LOADING DONSE 1 MILION KIU, PUMP PRIMING DOSE 1 MILION KIU, TOTOAL CONTINUOUS INFUSION
     Route: 065
     Dates: start: 20190726, end: 20190726
  4. FIBRINOGEN [Concomitant]
     Active Substance: FIBRINOGEN HUMAN
     Indication: TRANSFUSION
     Dosage: 1 G TOTAL, INTRA AND POST-OPERATIVE (UP TP 48H)
     Route: 065
     Dates: start: 20190726
  5. HEPARIN [Concomitant]
     Active Substance: HEPARIN SODIUM
     Indication: ANTICOAGULANT THERAPY
     Dosage: 37 KIU, ONCE DURING SURGERY
     Route: 065
     Dates: start: 20190726

REACTIONS (3)
  - Product use in unapproved indication [Unknown]
  - Acute kidney injury [Recovered/Resolved]
  - Off label use [Unknown]

NARRATIVE: CASE EVENT DATE: 20190726
